FAERS Safety Report 10334346 (Version 1)
Quarter: 2014Q3

REPORT INFORMATION
  Report Type: Spontaneous
  Country: US (occurrence: US)
  Receive Date: 20140723
  Receipt Date: 20140723
  Transmission Date: 20150326
  Serious: No
  Sender: FDA-Public Use
  Company Number: US-UNITED THERAPEUTICS-UTC-046070

PATIENT
  Age: 63 Year
  Sex: Female
  Weight: 79.37 kg

DRUGS (3)
  1. WARFARIN [Concomitant]
     Active Substance: WARFARIN
  2. REVATIO [Concomitant]
     Active Substance: SILDENAFIL CITRATE
  3. REMODULIN [Suspect]
     Active Substance: TREPROSTINIL
     Dosage: 0.0295 UG/KG/MIN
     Route: 041
     Dates: start: 20120217

REACTIONS (6)
  - Hyperhidrosis [Unknown]
  - Headache [Unknown]
  - Feeling hot [Unknown]
  - Hypopnoea [Unknown]
  - Drug dose omission [Recovered/Resolved]
  - Device occlusion [Recovered/Resolved]

NARRATIVE: CASE EVENT DATE: 20140310
